FAERS Safety Report 23049011 (Version 3)
Quarter: 2023Q4

REPORT INFORMATION
  Report Type: Report from Study
  Country: CA (occurrence: CA)
  Receive Date: 20231010
  Receipt Date: 20231211
  Transmission Date: 20240110
  Serious: Yes (Other)
  Sender: FDA-Public Use
  Company Number: CA-TAKEDA-2023TUS094166

PATIENT
  Sex: Female

DRUGS (5)
  1. VEDOLIZUMAB [Suspect]
     Active Substance: VEDOLIZUMAB
     Indication: Colitis ulcerative
     Dosage: 300 MILLIGRAM
     Route: 042
     Dates: start: 20230821
  2. VEDOLIZUMAB [Suspect]
     Active Substance: VEDOLIZUMAB
     Dosage: 300 MILLIGRAM
     Route: 042
  3. AZITHROMYCIN [Suspect]
     Active Substance: AZITHROMYCIN
     Indication: Bronchitis
     Dosage: UNK
     Route: 065
  4. PENTASA [Concomitant]
     Active Substance: MESALAMINE
     Dosage: 4000 MILLIGRAM, QD
     Route: 048
  5. PENTASA [Concomitant]
     Active Substance: MESALAMINE
     Dosage: 1000 MILLIGRAM, QD
     Route: 054

REACTIONS (2)
  - Diarrhoea [Recovered/Resolved]
  - Bronchitis [Recovered/Resolved]
